FAERS Safety Report 6369305-1 (Version None)
Quarter: 2009Q3

REPORT INFORMATION
  Report Type: 
  Country: None (occurrence: None)
  Receive Date: 20090916
  Receipt Date: 20090903
  Transmission Date: 20100115
  Serious: Yes (Hospitalization, Other)
  Sender: FDA-Public Use
  Company Number: 2009S1000107

PATIENT
  Age: 41 Year
  Sex: Female

DRUGS (3)
  1. SORIATANE [Suspect]
     Indication: PSORIASIS
     Dosage: QD; PO
     Route: 048
     Dates: start: 20080306, end: 20081018
  2. PSORALEN [Concomitant]
  3. TRIPHASIL-21 [Concomitant]

REACTIONS (4)
  - ABORTION [None]
  - MATERNAL DRUGS AFFECTING FOETUS [None]
  - PREGNANCY [None]
  - SPINA BIFIDA [None]
